FAERS Safety Report 5773403-0 (Version None)
Quarter: 2008Q2

REPORT INFORMATION
  Report Type: 
  Country: None (occurrence: None)
  Receive Date: 20080601
  Receipt Date: 20080116
  Transmission Date: 20081010
  Serious: No
  Sender: FDA-Public Use
  Company Number: US200704006483

PATIENT
  Age: 73 Year
  Sex: Male
  Weight: 89.8 kg

DRUGS (10)
  1. BYETTA [Suspect]
     Indication: TYPE 2 DIABETES MELLITUS
     Dosage: 5 UG, 2/D, SUBCUTANEOUS : 5 US, 2/D, SUBCUTANEOUS
     Route: 058
     Dates: start: 20071001, end: 20071201
  2. BYETTA [Suspect]
     Indication: TYPE 2 DIABETES MELLITUS
     Dosage: 5 UG, 2/D, SUBCUTANEOUS : 5 US, 2/D, SUBCUTANEOUS
     Route: 058
     Dates: start: 20070319
  3. BYETTA [Suspect]
     Indication: TYPE 2 DIABETES MELLITUS
     Dosage: 5 UG, 2/D, SUBCUTANEOUS : 5 US, 2/D, SUBCUTANEOUS
     Route: 058
     Dates: start: 20071201
  4. BYETTA [Suspect]
  5. EXENATIDE PEN, DISPOSABLE DEVICE (EXENATIDE PEN) PEN,DISPOSABLE [Concomitant]
  6. COUMADIN [Concomitant]
  7. AVODART [Concomitant]
  8. AVANDIA [Concomitant]
  9. GLIMEPIRIDE [Concomitant]
  10. FUROSEMIDE [Concomitant]

REACTIONS (11)
  - CHEST DISCOMFORT [None]
  - DECREASED APPETITE [None]
  - DIARRHOEA [None]
  - INJECTION SITE BRUISING [None]
  - INJECTION SITE DISCOMFORT [None]
  - INJECTION SITE IRRITATION [None]
  - INTERNATIONAL NORMALISED RATIO INCREASED [None]
  - MUSCLE STRAIN [None]
  - MUSCULOSKELETAL DISCOMFORT [None]
  - NAUSEA [None]
  - WEIGHT DECREASED [None]
